FAERS Safety Report 5117210-0 (Version None)
Quarter: 2006Q3

REPORT INFORMATION
  Report Type: 
  Country: None (occurrence: None)
  Receive Date: 20060926
  Receipt Date: 20060419
  Transmission Date: 20061208
  Serious: Yes (Death, Hospitalization)
  Sender: FDA-Public Use
  Company Number: 2006BH008355

PATIENT
  Age: 76 Year
  Sex: Male

DRUGS (16)
  1. DIANEAL [Suspect]
     Indication: RENAL FAILURE CHRONIC
     Dosage: 6 L; UNK; IP
     Route: 033
  2. FOLIC ACID [Concomitant]
  3. MAGNEBIND [Concomitant]
  4. SYNTHROID [Concomitant]
  5. ZESTRIL [Concomitant]
  6. PEPCID [Concomitant]
  7. LOPRESSOR [Concomitant]
  8. PROCARDIA XL [Concomitant]
  9. LANOXIN [Concomitant]
  10. NEPHROCAPS [Concomitant]
  11. ZOCOR [Concomitant]
  12. HUMULIN [Concomitant]
  13. PLAVIX [Concomitant]
  14. FOSRENOL [Concomitant]
  15. HUMALOG [Concomitant]
  16. PERI-COLACE [Concomitant]

REACTIONS (5)
  - ARTERIOSCLEROSIS CORONARY ARTERY [None]
  - CACHEXIA [None]
  - PERITONITIS [None]
  - PROCEDURAL COMPLICATION [None]
  - WRONG TECHNIQUE IN DRUG USAGE PROCESS [None]
